FAERS Safety Report 6044421-2 (Version None)
Quarter: 2009Q1

REPORT INFORMATION
  Report Type: 
  Country: None (occurrence: None)
  Receive Date: 20090120
  Receipt Date: 20090114
  Transmission Date: 20090719
  Serious: Yes (Hospitalization, Other)
  Sender: FDA-Public Use
  Company Number: PHHO2008FR14728

PATIENT
  Sex: Male

DRUGS (8)
  1. STI571/CGP57148B T35717+CAPS [Suspect]
     Indication: GASTRIC NEOPLASM
     Dosage: 400 MG, QD
     Route: 048
     Dates: start: 20070911
  2. ATENOLOL [Concomitant]
     Dosage: UNK
  3. ADANCOR [Concomitant]
  4. COVERSYL [Concomitant]
     Indication: HYPERTENSION
     Dosage: UNK
  5. ALLOPURINOL [Concomitant]
  6. PLAVIX [Concomitant]
     Indication: CEREBROVASCULAR ACCIDENT
  7. VALPROATE SODIUM [Concomitant]
     Indication: EPILEPSY
     Dosage: UNK
  8. MOPRAL [Concomitant]
     Indication: GASTROINTESTINAL DISORDER
     Dosage: UNK
     Dates: start: 20071101

REACTIONS (20)
  - ANAEMIA [None]
  - BLOOD ALBUMIN DECREASED [None]
  - BLOOD SODIUM DECREASED [None]
  - C-REACTIVE PROTEIN INCREASED [None]
  - CARDIAC FAILURE [None]
  - CONFUSIONAL STATE [None]
  - DISORIENTATION [None]
  - DYSPEPSIA [None]
  - HEPATOJUGULAR REFLUX [None]
  - HYPERTHERMIA [None]
  - HYPOALBUMINAEMIA [None]
  - HYPONATRAEMIA [None]
  - INAPPROPRIATE ANTIDIURETIC HORMONE SECRETION [None]
  - INFLAMMATION [None]
  - LUNG DISORDER [None]
  - MALNUTRITION [None]
  - OEDEMA PERIPHERAL [None]
  - RALES [None]
  - SOMNOLENCE [None]
  - THROMBOCYTOPENIA [None]
